FAERS Safety Report 7768790-8 (Version None)
Quarter: 2011Q3

REPORT INFORMATION
  Report Type: 
  Country: None (occurrence: None)
  Receive Date: 20110922
  Receipt Date: 20110425
  Transmission Date: 20111222
  Serious: No
  Sender: FDA-Public Use
  Company Number: US-ASTRAZENECA-2011SE20107

PATIENT
  Age: 54 Year
  Sex: Female

DRUGS (3)
  1. PAXIL [Concomitant]
     Indication: DEPRESSION
  2. SEROQUEL [Suspect]
     Indication: BIPOLAR DISORDER
     Route: 048
  3. LAMICTAL [Concomitant]
     Indication: DEPRESSION

REACTIONS (4)
  - SLEEP DISORDER [None]
  - MENTAL DISORDER [None]
  - INFLUENZA [None]
  - WEIGHT INCREASED [None]
